FAERS Safety Report 14193541 (Version 4)
Quarter: 2018Q2

REPORT INFORMATION
  Report Type: Spontaneous
  Country: CO (occurrence: CO)
  Receive Date: 20171115
  Receipt Date: 20180420
  Transmission Date: 20180711
  Serious: Yes (Hospitalization, Other)
  Sender: FDA-Public Use
  Company Number: CO-MYLANLABS-2017M1072491

PATIENT
  Age: 2 Year
  Sex: Female
  Weight: 6 kg

DRUGS (4)
  1. PHOSPHATE [Concomitant]
     Active Substance: UNSPECIFIED INGREDIENT
     Indication: PRODUCT USED FOR UNKNOWN INDICATION
     Dosage: 20 ML, Q6H
     Dates: start: 201609
  2. MERCAPTAMINE [Suspect]
     Active Substance: CYSTEAMINE
     Dosage: 150 MG, Q6H
     Route: 048
     Dates: start: 201710
  3. MERCAPTAMINE [Suspect]
     Active Substance: CYSTEAMINE
     Indication: CYSTINOSIS
     Dosage: 150 MG, Q6H
     Route: 048
     Dates: start: 201702, end: 20171010
  4. MERCAPTAMINE [Suspect]
     Active Substance: CYSTEAMINE
     Dosage: 75 MG, BID,WITH GRADUALLY INCREASE OF 600 MG QD
     Route: 048
     Dates: start: 20171017, end: 201710

REACTIONS (8)
  - Parainfluenzae virus infection [Recovered/Resolved]
  - Underdose [Unknown]
  - Polyuria [Unknown]
  - Dehydration [Recovering/Resolving]
  - Respiratory distress [Recovering/Resolving]
  - Overdose [Unknown]
  - Respiratory failure [Recovering/Resolving]
  - Pneumonia viral [Recovered/Resolved]

NARRATIVE: CASE EVENT DATE: 201702
